FAERS Safety Report 22331797 (Version 1)
Quarter: 2023Q2

REPORT INFORMATION
  Report Type: Spontaneous
  Country: US (occurrence: US)
  Receive Date: 20230517
  Receipt Date: 20230517
  Transmission Date: 20230721
  Serious: No
  Sender: FDA-Public Use
  Company Number: US-009507513-2305USA000840

PATIENT
  Age: 72 Year
  Sex: Male

DRUGS (2)
  1. KEYTRUDA [Suspect]
     Active Substance: PEMBROLIZUMAB
     Indication: Metastatic malignant melanoma
  2. LENVATINIB MESYLATE [Suspect]
     Active Substance: LENVATINIB MESYLATE
     Indication: Metastatic malignant melanoma
     Dosage: 20 MILLIGRAM
     Route: 048
     Dates: start: 20230413

REACTIONS (2)
  - Myalgia [Unknown]
  - Vitreous floaters [Unknown]
